FAERS Safety Report 16881191 (Version 2)
Quarter: 2019Q4

REPORT INFORMATION
  Report Type: Report from Study
  Country: AU (occurrence: AU)
  Receive Date: 20191003
  Receipt Date: 20191108
  Transmission Date: 20200122
  Serious: Yes (Other)
  Sender: FDA-Public Use
  Company Number: AU-ASTELLAS-2019US038544

PATIENT
  Age: 91 Year
  Sex: Male

DRUGS (2)
  1. TELMISARTAN. [Suspect]
     Active Substance: TELMISARTAN
     Indication: PRODUCT USED FOR UNKNOWN INDICATION
     Dosage: UNK UNK, UNKNOWN FREQ.
     Route: 065
  2. ENZALUTAMIDE [Suspect]
     Active Substance: ENZALUTAMIDE
     Indication: HORMONE-REFRACTORY PROSTATE CANCER
     Dosage: UNK UNK, UNKNOWN FREQ. (STANDARD DOSE)
     Route: 065
     Dates: start: 20160726

REACTIONS (1)
  - Tubulointerstitial nephritis [Recovered/Resolved]

NARRATIVE: CASE EVENT DATE: 20160914
